FAERS Safety Report 6346878-6 (Version None)
Quarter: 2009Q3

REPORT INFORMATION
  Report Type: 
  Country: None (occurrence: None)
  Receive Date: 20090909
  Receipt Date: 20090909
  Transmission Date: 20100115
  Serious: Yes (Other)
  Sender: FDA-Public Use
  Company Number: None

PATIENT
  Age: 30 Year
  Sex: Female
  Weight: 74.8435 kg

DRUGS (1)
  1. ZICAM NOSE SWABS ZICAM [Suspect]
     Indication: NASOPHARYNGITIS
     Dosage: 1 TIP 2X DAY NASAL
     Route: 045
     Dates: start: 20070101, end: 20090601

REACTIONS (1)
  - PAROSMIA [None]
